FAERS Safety Report 6892304-8 (Version None)
Quarter: 2010Q3

REPORT INFORMATION
  Report Type: 
  Country: None (occurrence: None)
  Receive Date: 20100731
  Receipt Date: 20080322
  Transmission Date: 20110219
  Serious: No
  Sender: FDA-Public Use
  Company Number: US-PFIZER INC-2008026644

PATIENT
  Sex: Male

DRUGS (2)
  1. CAVERJECT [Suspect]
     Indication: PEYRONIE'S DISEASE
  2. CAVERJECT [Suspect]
     Indication: ERECTILE DYSFUNCTION

REACTIONS (3)
  - DRUG INEFFECTIVE [None]
  - PAIN [None]
  - SKIN DISCOLOURATION [None]
